FAERS Safety Report 23807368 (Version 2)
Quarter: 2024Q2

REPORT INFORMATION
  Report Type: Spontaneous
  Country: US (occurrence: US)
  Receive Date: 20240502
  Receipt Date: 20240516
  Transmission Date: 20240715
  Serious: Yes (Hospitalization)
  Sender: FDA-Public Use
  Company Number: US-MYLANLABS-2024M1037930

PATIENT
  Age: 4 Decade
  Sex: Male

DRUGS (2)
  1. BUPRENORPHINE [Suspect]
     Active Substance: BUPRENORPHINE
     Indication: Drug use disorder
     Dosage: 300 MILLIGRAM, MONTHLY
     Route: 065
  2. BUPRENORPHINE\NALOXONE [Concomitant]
     Active Substance: BUPRENORPHINE\NALOXONE
     Indication: Drug use disorder
     Dosage: UNK (5 TO 10 FILMS)
     Route: 060

REACTIONS (3)
  - Venous thrombosis [Recovered/Resolved]
  - Loss of consciousness [Recovered/Resolved]
  - Venous occlusion [Recovered/Resolved]
